FAERS Safety Report 11634692 (Version 1)
Quarter: 2015Q4

REPORT INFORMATION
  Report Type: Spontaneous
  Country: US (occurrence: US)
  Receive Date: 20151015
  Receipt Date: 20151015
  Transmission Date: 20160304
  Serious: Yes (Hospitalization)
  Sender: FDA-Public Use
  Company Number: US-RB PHARMACEUTICALS LIMITED-RB-72271-2014

PATIENT
  Sex: Male

DRUGS (1)
  1. SUBOXONE [Suspect]
     Active Substance: BUPRENORPHINE HYDROCHLORIDE\NALOXONE HYDROCHLORIDE
     Indication: DRUG DEPENDENCE
     Dosage: UNK, DAILY
     Route: 060
     Dates: end: 2013

REACTIONS (4)
  - Drug detoxification [Recovered/Resolved]
  - Fluid intake reduced [Recovered/Resolved]
  - Decreased appetite [Recovered/Resolved]
  - Vomiting [Recovered/Resolved]

NARRATIVE: CASE EVENT DATE: 2013
